FAERS Safety Report 17050316 (Version 17)
Quarter: 2020Q3

REPORT INFORMATION
  Report Type: Spontaneous
  Country: US (occurrence: US)
  Receive Date: 20191119
  Receipt Date: 20200818
  Transmission Date: 20201102
  Serious: No
  Sender: FDA-Public Use
  Company Number: US-ACTELION-A-US2019-198418

PATIENT
  Age: 44 Year
  Sex: Female
  Weight: 86.17 kg

DRUGS (12)
  1. UPTRAVI [Interacting]
     Active Substance: SELEXIPAG
     Dosage: 800 MCG AM AND 1000 MCG PM
     Route: 048
  2. UPTRAVI [Interacting]
     Active Substance: SELEXIPAG
     Dosage: 400 MCG, BID
     Route: 048
  3. LASIX [Interacting]
     Active Substance: FUROSEMIDE
     Indication: PRODUCT USED FOR UNKNOWN INDICATION
     Route: 065
  4. UPTRAVI [Interacting]
     Active Substance: SELEXIPAG
     Dosage: 1600 MCG, BID, PM DOSE
     Route: 048
  5. OPSUMIT [Suspect]
     Active Substance: MACITENTAN
     Indication: PULMONARY ARTERIAL HYPERTENSION
     Dosage: 10 MG, QD
     Route: 048
  6. UPTRAVI [Interacting]
     Active Substance: SELEXIPAG
     Indication: PULMONARY ARTERIAL HYPERTENSION
     Dosage: 1600 MCG
     Route: 048
     Dates: start: 20200320
  7. UPTRAVI [Interacting]
     Active Substance: SELEXIPAG
     Dosage: 400 MCG, QAM
     Route: 048
  8. UPTRAVI [Interacting]
     Active Substance: SELEXIPAG
     Dosage: 600 MCG, QPM
     Route: 048
  9. UPTRAVI [Interacting]
     Active Substance: SELEXIPAG
     Dosage: 600 MCG IN AM, 800 MCG IN PM
     Route: 048
  10. UPTRAVI [Interacting]
     Active Substance: SELEXIPAG
     Dosage: 1299 MCG, BID
     Route: 048
  11. ADEMPAS [Concomitant]
     Active Substance: RIOCIGUAT
  12. UPTRAVI [Interacting]
     Active Substance: SELEXIPAG
     Dosage: 1400 MCG, BID, AM DOSE
     Route: 048

REACTIONS (31)
  - Dyspepsia [Not Recovered/Not Resolved]
  - Arthralgia [Unknown]
  - Myalgia [Recovered/Resolved]
  - Dehydration [Unknown]
  - Constipation [Unknown]
  - Presyncope [Unknown]
  - Nasopharyngitis [Unknown]
  - Dysgeusia [Unknown]
  - Bone pain [Recovering/Resolving]
  - Nasal congestion [Unknown]
  - Abdominal distension [Not Recovered/Not Resolved]
  - Fatigue [Not Recovered/Not Resolved]
  - Muscle spasms [Unknown]
  - Nausea [Unknown]
  - Bronchitis [Unknown]
  - Chest pain [Unknown]
  - Somnolence [Unknown]
  - Chills [Recovered/Resolved]
  - Upper respiratory tract infection [Unknown]
  - Fall [Unknown]
  - Vomiting [Unknown]
  - Dizziness [Not Recovered/Not Resolved]
  - Diarrhoea [Not Recovered/Not Resolved]
  - Dyspnoea exertional [Unknown]
  - Pollakiuria [Unknown]
  - Gastrooesophageal reflux disease [Not Recovered/Not Resolved]
  - Headache [Unknown]
  - Back pain [Unknown]
  - Unevaluable event [Unknown]
  - Haemoptysis [Unknown]
  - Chest discomfort [Unknown]

NARRATIVE: CASE EVENT DATE: 20200214
